FAERS Safety Report 25813555 (Version 2)
Quarter: 2025Q3

REPORT INFORMATION
  Report Type: Spontaneous
  Country: EU (occurrence: EU)
  Receive Date: 20250917
  Receipt Date: 20250919
  Transmission Date: 20251021
  Serious: Yes (Life-Threatening, Other)
  Sender: RANBAXY
  Company Number: EU-SUN PHARMACEUTICAL INDUSTRIES INC-2025RR-527594

PATIENT
  Sex: Female
  Weight: 75 kg

DRUGS (1)
  1. ODOMZO [Suspect]
     Active Substance: SONIDEGIB
     Indication: Basal cell carcinoma
     Route: 065
     Dates: start: 202501, end: 20250513

REACTIONS (2)
  - Renal failure [Unknown]
  - Dysgeusia [Unknown]
